FAERS Safety Report 8916947 (Version 1)
Quarter: 2012Q4

REPORT INFORMATION
  Report Type: 
  Country: US (occurrence: US)
  Receive Date: 20121120
  Receipt Date: 20121120
  Transmission Date: 20130627
  Serious: No
  Sender: FDA-Public Use
  Company Number: US-PFIZER INC-2012290454

PATIENT
  Age: 48 Year
  Sex: Female
  Weight: 68.03 kg

DRUGS (3)
  1. NEURONTIN [Suspect]
     Indication: NEUROPATHY
     Dosage: 800 mg, 3x/day
     Route: 048
     Dates: end: 2003
  2. CRESTOR [Concomitant]
     Dosage: UNK
  3. CLONIDINE [Concomitant]
     Dosage: UNK

REACTIONS (3)
  - Somnolence [Unknown]
  - Feeling abnormal [Unknown]
  - Drug ineffective [Unknown]
